FAERS Safety Report 12120150 (Version 3)
Quarter: 2016Q2

REPORT INFORMATION
  Report Type: Spontaneous
  Country: US (occurrence: US)
  Receive Date: 20160226
  Receipt Date: 20160407
  Transmission Date: 20160815
  Serious: No
  Sender: FDA-Public Use
  Company Number: US-PFIZER INC-2016098965

PATIENT
  Age: 46 Year
  Sex: Female

DRUGS (4)
  1. FASLODEX [Concomitant]
     Active Substance: FULVESTRANT
     Indication: BREAST CANCER
     Dosage: UNK
  2. IBRANCE [Suspect]
     Active Substance: PALBOCICLIB
     Dosage: 125 MG, DAILY (FOR 21 DAYS)
     Dates: start: 20160223
  3. IBRANCE [Suspect]
     Active Substance: PALBOCICLIB
     Indication: BREAST CANCER
     Dosage: 125 MG (1 CAPSULE) DAILY FOR 21 DAYS
     Dates: start: 20160129
  4. GOSERELIN [Concomitant]
     Active Substance: GOSERELIN
     Indication: BREAST CANCER
     Dosage: UNK

REACTIONS (8)
  - Rash [Unknown]
  - Fatigue [Unknown]
  - Vomiting [Not Recovered/Not Resolved]
  - Product use issue [Unknown]
  - Headache [Unknown]
  - Oropharyngeal pain [Unknown]
  - Erythema [Unknown]
  - Nausea [Not Recovered/Not Resolved]

NARRATIVE: CASE EVENT DATE: 2016
